FAERS Safety Report 7640639-3 (Version None)
Quarter: 2011Q3

REPORT INFORMATION
  Report Type: 
  Country: None (occurrence: None)
  Receive Date: 20110721
  Receipt Date: 20110708
  Transmission Date: 20111222
  Serious: Yes (Life-Threatening, Other)
  Sender: FDA-Public Use
  Company Number: FK201101349

PATIENT
  Age: 55 Year
  Sex: Female

DRUGS (3)
  1. XYLOCAINE W/ EPINEPHRENE [Suspect]
     Indication: PRODUCT USED FOR UNKNOWN INDICATION
     Dosage: 12 ML, 1 %
     Route: 048
  2. DIAZEPAM [Concomitant]
  3. PROPRANOLOL [Suspect]
     Indication: MIGRAINE
     Dosage: 40 MG, BID
     Route: 048

REACTIONS (2)
  - HYPERTENSION [None]
  - BRADYCARDIA [None]
